FAERS Safety Report 4575764-7 (Version None)
Quarter: 2005Q1

REPORT INFORMATION
  Report Type: 
  Country: None (occurrence: None)
  Receive Date: 20050128
  Receipt Date: 20050128
  Transmission Date: 20050727
  Serious: No
  Sender: FDA-Public Use
  Company Number: None

PATIENT
  Age: 27 Year
  Sex: Female

DRUGS (1)
  1. MORPHINE [Suspect]
     Indication: PAIN
     Dosage: 1 MG   PCA   INTRAVENOU
     Route: 042

REACTIONS (4)
  - AGONAL DEATH STRUGGLE [None]
  - DEPRESSED LEVEL OF CONSCIOUSNESS [None]
  - OXYGEN SATURATION DECREASED [None]
  - RESPIRATION ABNORMAL [None]
